FAERS Safety Report 16692907 (Version 1)
Quarter: 2019Q3

REPORT INFORMATION
  Report Type: Spontaneous
  Country: US (occurrence: US)
  Receive Date: 20190625
  Receipt Date: 20190625
  Transmission Date: 20191004
  Serious: No
  Sender: FDA-Public Use
  Company Number: None

PATIENT
  Age: 76 Year
  Sex: Male

DRUGS (1)
  1. ZYTIGA [Suspect]
     Active Substance: ABIRATERONE ACETATE
     Dates: start: 20180731, end: 20181121

REACTIONS (2)
  - Malaise [None]
  - Pain in extremity [None]

NARRATIVE: CASE EVENT DATE: 20181121
